FAERS Safety Report 6127910-1 (Version None)
Quarter: 2009Q1

REPORT INFORMATION
  Report Type: 
  Country: None (occurrence: None)
  Receive Date: 20090319
  Receipt Date: 20090311
  Transmission Date: 20090719
  Serious: Yes (Hospitalization)
  Sender: FDA-Public Use
  Company Number: 6049681

PATIENT
  Age: 34 Year
  Sex: Female

DRUGS (1)
  1. L-THYROXIN (TABLET) (LEVOTHYROXINE) [Suspect]
     Indication: AUTOIMMUNE THYROIDITIS
     Dosage: 125 MCG (125 MCG, 1 IN 1 D) ORAL
     Route: 048

REACTIONS (3)
  - ATRIOVENTRICULAR BLOCK SECOND DEGREE [None]
  - SINOATRIAL BLOCK [None]
  - SUPRAVENTRICULAR EXTRASYSTOLES [None]
